FAERS Safety Report 9118170 (Version 1)
Quarter: 2013Q1

REPORT INFORMATION
  Report Type: Report from Study
  Country: US (occurrence: US)
  Receive Date: 20130129
  Receipt Date: 20130129
  Transmission Date: 20140127
  Serious: No
  Sender: FDA-Public Use
  Company Number: US-ABBOTT-12P-163-0937009-00

PATIENT
  Sex: Male
  Weight: 136.2 kg

DRUGS (2)
  1. HUMIRA 40 MG/ 0.8 ML PRE-FILLED SYRINGE [Suspect]
     Indication: CROHN^S DISEASE
     Dates: start: 201105
  2. PREDNISONE [Concomitant]
     Indication: INFLAMMATION

REACTIONS (7)
  - Tendon rupture [Recovering/Resolving]
  - Tendon rupture [Recovering/Resolving]
  - Inflammation [Recovering/Resolving]
  - Unemployment [Unknown]
  - Dysstasia [Unknown]
  - Pain [Recovering/Resolving]
  - Impaired healing [Recovering/Resolving]
